FAERS Safety Report 7017579-6 (Version None)
Quarter: 2010Q3

REPORT INFORMATION
  Report Type: 
  Country: None (occurrence: None)
  Receive Date: 20100928
  Receipt Date: 20100517
  Transmission Date: 20110219
  Serious: Yes (Other)
  Sender: FDA-Public Use
  Company Number: US-ASTRAZENECA-2008UW07373

PATIENT
  Age: 46 Year
  Sex: Male

DRUGS (6)
  1. SEROQUEL [Suspect]
     Dosage: 50 MG TO 100 MG AT NIGHT
     Route: 048
     Dates: start: 19981007
  2. LITHIUM [Concomitant]
     Dosage: 600-1500 MG DAILY
     Dates: start: 19981001
  3. LIPITOR [Concomitant]
     Dates: start: 20051101
  4. TRAZODONE HCL [Concomitant]
     Dates: start: 19981001
  5. NEURONTIN [Concomitant]
     Dosage: 100 MG I AM AND II HS
     Dates: start: 19981007
  6. WELLBUTRIN SR [Concomitant]
     Dates: start: 19981007

REACTIONS (2)
  - NEUROPATHY PERIPHERAL [None]
  - TYPE 2 DIABETES MELLITUS [None]
